FAERS Safety Report 26112789 (Version 1)
Quarter: 2025Q4

REPORT INFORMATION
  Report Type: Spontaneous
  Country: GB (occurrence: GB)
  Receive Date: 20251202
  Receipt Date: 20251202
  Transmission Date: 20260117
  Serious: Yes (Other)
  Sender: FRESENIUS KABI
  Company Number: GB-FreseniusKabi-FK202516391

PATIENT
  Age: 61 Year
  Sex: Female

DRUGS (2)
  1. DEXTROSE [Suspect]
     Active Substance: DEXTROSE MONOHYDRATE
     Indication: Product used for unknown indication
     Dosage: PERIPHERAL CANNULA INSERTED ONTO THE DORSUM OF THE LEFT FOOT?INFUSION
     Route: 042
  2. METARAMINOL [Suspect]
     Active Substance: METARAMINOL
     Indication: Product used for unknown indication
     Dosage: PERIPHERAL CANNULA INSERTED ONTO THE DORSUM OF THE LEFT FOOT?INFUSION
     Route: 042

REACTIONS (2)
  - Calciphylaxis [Recovering/Resolving]
  - Extravasation [Unknown]
